FAERS Safety Report 11291752 (Version 1)
Quarter: 2015Q3

REPORT INFORMATION
  Report Type: Spontaneous
  Country: GB (occurrence: GB)
  Receive Date: 20150722
  Receipt Date: 20150722
  Transmission Date: 20151125
  Serious: Yes (Other)
  Sender: FDA-Public Use
  Company Number: GB-PFIZER INC-2015237276

PATIENT
  Weight: 71 kg

DRUGS (2)
  1. DOXORUBICIN [Suspect]
     Active Substance: DOXORUBICIN
     Dosage: UNK
  2. MIFAMURTIDE [Interacting]
     Active Substance: MIFAMURTIDE
     Dosage: UNK

REACTIONS (2)
  - Cardiotoxicity [Unknown]
  - Drug interaction [Unknown]
